FAERS Safety Report 6554407-7 (Version None)
Quarter: 2010Q1

REPORT INFORMATION
  Report Type: 
  Country: None (occurrence: None)
  Receive Date: 20100125
  Receipt Date: 20100125
  Transmission Date: 20100710
  Serious: Yes (Hospitalization)
  Sender: FDA-Public Use
  Company Number: None

PATIENT
  Sex: Male
  Weight: 22.7 kg

DRUGS (5)
  1. DAUNORUBICIN HCL [Suspect]
     Dosage: 69 MG
  2. DEXAMETHASONE [Suspect]
     Dosage: 126 MG
  3. PEG-L-ASPARAGINASE (K-H) [Suspect]
     Dosage: 2250 IU
  4. VINCRISTINE SULFATE [Suspect]
     Dosage: 4.2 MG
  5. CYTARABINE [Suspect]
     Dosage: 70 MG

REACTIONS (5)
  - CARDIAC ARREST [None]
  - LEUKOPENIA [None]
  - NEUTROPENIA [None]
  - PULMONARY HAEMORRHAGE [None]
  - THROMBOCYTOPENIA [None]
